FAERS Safety Report 19300123 (Version 2)
Quarter: 2021Q2

REPORT INFORMATION
  Report Type: Other
  Country: US (occurrence: US)
  Receive Date: 20210525
  Receipt Date: 20210618
  Transmission Date: 20210717
  Serious: Yes (Other)
  Sender: FDA-Public Use
  Company Number: US-ROCHE-2831392

PATIENT
  Age: 65 Year
  Sex: Male
  Weight: 93.07 kg

DRUGS (10)
  1. OCREVUS [Suspect]
     Active Substance: OCRELIZUMAB
     Indication: RELAPSING-REMITTING MULTIPLE SCLEROSIS
     Dosage: 600 MG IV EVERY 6 MONTHS
     Route: 042
  2. PROPAFENONE. [Concomitant]
     Active Substance: PROPAFENONE
  3. AMBIEN [Concomitant]
     Active Substance: ZOLPIDEM TARTRATE
     Route: 048
  4. FLUOXETINE [Concomitant]
     Active Substance: FLUOXETINE HYDROCHLORIDE
     Route: 048
  5. PREVACID [Concomitant]
     Active Substance: LANSOPRAZOLE
     Route: 048
  6. CYANOCOBALAMINE [Concomitant]
     Active Substance: CYANOCOBALAMIN
  7. MAGNESIUM GLUCONATE [Concomitant]
     Active Substance: MAGNESIUM GLUCONATE
  8. LACTULOSE. [Concomitant]
     Active Substance: LACTULOSE
  9. LISINOPRIL. [Concomitant]
     Active Substance: LISINOPRIL
  10. AMANTADINE. [Concomitant]
     Active Substance: AMANTADINE HYDROCHLORIDE
     Route: 048

REACTIONS (8)
  - Atrial fibrillation [Unknown]
  - Peripheral paralysis [Unknown]
  - Memory impairment [Unknown]
  - Lymphocyte count decreased [Unknown]
  - Depression [Unknown]
  - Asthenia [Unknown]
  - Weight decreased [Unknown]
  - JC polyomavirus test positive [Unknown]

NARRATIVE: CASE EVENT DATE: 20200110
